FAERS Safety Report 22356294 (Version 1)
Quarter: 2023Q2

REPORT INFORMATION
  Report Type: Spontaneous
  Country: GB (occurrence: GB)
  Receive Date: 20230523
  Receipt Date: 20230523
  Transmission Date: 20230722
  Serious: Yes (Disabling)
  Sender: FDA-Public Use
  Company Number: None

PATIENT
  Age: 64 Year
  Sex: Female
  Weight: 82 kg

DRUGS (7)
  1. EZETIMIBE [Suspect]
     Active Substance: EZETIMIBE
     Indication: Ill-defined disorder
     Dosage: UNK
     Dates: start: 20230425
  2. ATORVASTATIN [Concomitant]
     Active Substance: ATORVASTATIN
     Indication: Ill-defined disorder
     Dosage: TAKE ONE DAILY
     Dates: start: 20230215, end: 20230324
  3. CLOPIDOGREL [Concomitant]
     Active Substance: CLOPIDOGREL BISULFATE
     Indication: Ill-defined disorder
     Dosage: TAKE ONE ONCE DAILY
     Dates: start: 20230215
  4. DOXYCYCLINE [Concomitant]
     Active Substance: DOXYCYCLINE
     Indication: Ill-defined disorder
     Dosage: TAKE TWO NOW THEN ONE DAILY FOR 4 DAYS TO TREAT...
     Dates: start: 20230320, end: 20230325
  5. EZETIMIBE [Concomitant]
     Active Substance: EZETIMIBE
     Indication: Ill-defined disorder
     Dosage: TAKE ONE TABLET ONCE DAILY
     Dates: start: 20230324, end: 20230515
  6. LANSOPRAZOLE [Concomitant]
     Active Substance: LANSOPRAZOLE
     Indication: Ill-defined disorder
     Dosage: TAKE ONE ONCE DAILY
     Dates: start: 20230215
  7. NITROFURANTOIN [Concomitant]
     Active Substance: NITROFURANTOIN
     Indication: Ill-defined disorder
     Dosage: TAKE ONE CAPSULE TWICE DAILY FOR 3 DAYS, TO TRE...
     Dates: start: 20230310, end: 20230313

REACTIONS (2)
  - Adverse drug reaction [Recovered/Resolved]
  - Fatigue [Recovered/Resolved]

NARRATIVE: CASE EVENT DATE: 20230425
